FAERS Safety Report 22646214 (Version 1)
Quarter: 2023Q2

REPORT INFORMATION
  Report Type: Report from Study
  Country: CA (occurrence: CA)
  Receive Date: 20230627
  Receipt Date: 20230627
  Transmission Date: 20230722
  Serious: Yes (Other)
  Sender: FDA-Public Use
  Company Number: CA-SAMSUNG BIOEPIS-SB-2023-16774

PATIENT
  Age: 61 Year
  Sex: Male

DRUGS (1)
  1. ETANERCEPT [Suspect]
     Active Substance: ETANERCEPT
     Indication: Rheumatoid arthritis
     Dosage: 50 MG/ML;
     Route: 065
     Dates: start: 20230405

REACTIONS (4)
  - Bedridden [Unknown]
  - Gait inability [Unknown]
  - Acute kidney injury [Recovering/Resolving]
  - Liver disorder [Recovering/Resolving]
